FAERS Safety Report 5633338-0 (Version None)
Quarter: 2008Q1

REPORT INFORMATION
  Report Type: 
  Country: None (occurrence: None)
  Receive Date: 20080221
  Receipt Date: 20080213
  Transmission Date: 20080703
  Serious: Yes (Hospitalization, Other)
  Sender: FDA-Public Use
  Company Number: DE-JNJFOC-20070700815

PATIENT
  Sex: Male
  Weight: 92.3 kg

DRUGS (2)
  1. CONCERTA [Suspect]
     Indication: ATTENTION DEFICIT/HYPERACTIVITY DISORDER
     Route: 048
  2. METOCLOPRAMID [Suspect]
     Indication: VOMITING
     Route: 048

REACTIONS (8)
  - BLOOD CREATININE INCREASED [None]
  - CONVULSION [None]
  - DYSARTHRIA [None]
  - HEADACHE [None]
  - HYPERHIDROSIS [None]
  - NAUSEA [None]
  - SOMNOLENCE [None]
  - VOMITING [None]
